FAERS Safety Report 14152169 (Version 1)
Quarter: 2017Q4

REPORT INFORMATION
  Report Type: Spontaneous
  Country: FR (occurrence: FR)
  Receive Date: 20171102
  Receipt Date: 20171102
  Transmission Date: 20180321
  Serious: Yes (Hospitalization, Other)
  Sender: FDA-Public Use
  Company Number: FR-AMGEN-FRASP2017163399

PATIENT
  Age: 85 Year
  Sex: Female

DRUGS (6)
  1. PROLIA [Suspect]
     Active Substance: DENOSUMAB
     Indication: OSTEOPOROSIS
     Dosage: 60 MG, UNK
     Route: 042
     Dates: start: 201312
  2. VASTEN [Concomitant]
     Active Substance: PRAVASTATIN SODIUM
     Dosage: 20 MG, UNK
  3. FLECAINE [Concomitant]
     Active Substance: FLECAINIDE
     Dosage: 200 MG, UNK
  4. CELIPROLOL [Concomitant]
     Active Substance: CELIPROLOL
     Dosage: 200 MG, UNK
  5. DAFALGAN CODEINE [Concomitant]
     Active Substance: ACETAMINOPHEN\CODEINE PHOSPHATE
  6. TEMESTA (LORAZEPAM) [Concomitant]
     Active Substance: LORAZEPAM
     Dosage: 1 MG, UNK

REACTIONS (1)
  - Generalised tonic-clonic seizure [Recovering/Resolving]

NARRATIVE: CASE EVENT DATE: 20170927
